FAERS Safety Report 13839554 (Version 1)
Quarter: 2017Q3

REPORT INFORMATION
  Report Type: Spontaneous
  Country: GB (occurrence: GB)
  Receive Date: 20170807
  Receipt Date: 20170807
  Transmission Date: 20171127
  Serious: Yes (Other)
  Sender: FDA-Public Use
  Company Number: GB-TEVA-792741ACC

PATIENT
  Age: 42 Year
  Sex: Female
  Weight: 85.72 kg

DRUGS (4)
  1. CURCUMIN [Concomitant]
     Active Substance: CURCUMIN
  2. TEVA CLARITHROMYCIN [Suspect]
     Active Substance: CLARITHROMYCIN
     Indication: INFECTED VARICOSE VEIN
     Dosage: 500 MILLIGRAM DAILY;
     Route: 048
     Dates: start: 20170713, end: 20170714
  3. ZINC. [Concomitant]
     Active Substance: ZINC
  4. MILK THISTLE SEED EXTRACT [Concomitant]

REACTIONS (4)
  - Malaise [Recovered/Resolved]
  - Tremor [Recovered/Resolved]
  - Heart rate increased [Recovered/Resolved]
  - Pyrexia [Recovered/Resolved]

NARRATIVE: CASE EVENT DATE: 20170714
